FAERS Safety Report 8150810-2 (Version None)
Quarter: 2012Q1

REPORT INFORMATION
  Report Type: 
  Country: None (occurrence: None)
  Receive Date: 20120220
  Receipt Date: 20120215
  Transmission Date: 20120608
  Serious: Yes (Hospitalization)
  Sender: FDA-Public Use
  Company Number: US-PFIZER INC-2011316547

PATIENT
  Sex: Male
  Weight: 105.5 kg

DRUGS (15)
  1. OXYCONTIN [Concomitant]
  2. SPIRONOLACTONE [Suspect]
     Indication: HYPERTENSION
     Dosage: 25 MG, DAILY
     Route: 048
     Dates: start: 20101022, end: 20111201
  3. ACETYLSALICYLIC ACID [Concomitant]
  4. PROCET /USA/ [Concomitant]
  5. CHLORTALIDONE [Concomitant]
  6. ZOLPIDEM [Concomitant]
  7. INSULIN DETEMIR [Concomitant]
  8. OXYCODONE [Concomitant]
  9. AMBIEN [Concomitant]
  10. ATENOLOL [Suspect]
     Indication: HYPERTENSION
     Dosage: 50 MG, 1X/DAY
     Route: 048
     Dates: start: 20090601, end: 20100809
  11. LISINOPRIL [Concomitant]
  12. HYDROCHLOROTHIAZIDE [Concomitant]
  13. VERAPAMIL HCL [Suspect]
     Indication: HYPERTENSION
     Dosage: 240 MG, DAILY
     Route: 048
     Dates: start: 20111001, end: 20111201
  14. TRAMADOL [Concomitant]
  15. BLINDED THERAPY [Suspect]
     Indication: DIABETIC NEUROPATHY
     Dosage: UNK MG, 1X/DAY
     Route: 048
     Dates: start: 20100601

REACTIONS (2)
  - HYPONATRAEMIA [None]
  - BRADYCARDIA [None]
